FAERS Safety Report 5018697-4 (Version None)
Quarter: 2006Q2

REPORT INFORMATION
  Report Type: 
  Country: None (occurrence: None)
  Receive Date: 20060605
  Receipt Date: 20060404
  Transmission Date: 20061013
  Serious: Yes (Death, Hospitalization)
  Sender: FDA-Public Use
  Company Number: MX-ABBOTT-06P-107-0329981-00

PATIENT
  Sex: Female
  Weight: 40 kg

DRUGS (2)
  1. KALETRA [Suspect]
     Indication: HIV TEST POSITIVE
     Dosage: 800MG/200MG (400MG/100MG)
     Route: 048
     Dates: start: 20060125
  2. KALETRA [Suspect]
     Route: 048
     Dates: start: 20051022, end: 20060114

REACTIONS (4)
  - ANAEMIA [None]
  - CACHEXIA [None]
  - DEATH [None]
  - OESOPHAGEAL CANDIDIASIS [None]
